FAERS Safety Report 16123577 (Version 1)
Quarter: 2019Q1

REPORT INFORMATION
  Report Type: Spontaneous
  Country: FR (occurrence: FR)
  Receive Date: 20190327
  Receipt Date: 20190327
  Transmission Date: 20190418
  Serious: Yes (Life-Threatening)
  Sender: FDA-Public Use
  Company Number: FR-TEVA-2019-FR-1029726

PATIENT
  Age: 86 Year
  Sex: Male
  Weight: 73 kg

DRUGS (11)
  1. NORMACOL [Concomitant]
     Active Substance: HERBALS\KARAYA GUM
     Route: 048
  2. DULCILARMES, COLLYRE EN SOLUTION [Concomitant]
     Dosage: 3 GTT DAILY;
     Route: 047
  3. EDUCTYL [Concomitant]
     Active Substance: POTASSIUM BITARTRATE\SODIUM BICARBONATE
     Route: 065
  4. XATRAL 2,5 MG, COMPRIME PELLICULE [Concomitant]
     Dosage: 4 DOSAGE FORMS DAILY;
     Route: 048
  5. ELIQUIS [Concomitant]
     Active Substance: APIXABAN
     Dosage: 2 DOSAGE FORMS DAILY;
     Route: 048
  6. MIRTAZAPINE. [Suspect]
     Active Substance: MIRTAZAPINE
     Indication: PRODUCT USED FOR UNKNOWN INDICATION
     Dosage: 45 MILLIGRAM DAILY; IN THE EVENING
     Route: 048
  7. MOVICOL [Concomitant]
     Active Substance: POLYETHYLENE GLYCOL 3350\POTASSIUM CHLORIDE\SODIUM BICARBONATE\SODIUM CHLORIDE
     Dosage: 2 DOSAGE FORMS DAILY; IN THE MORNING; IN SACHET
     Route: 048
  8. CLOZAPINE. [Suspect]
     Active Substance: CLOZAPINE
     Indication: AGGRESSION
     Dosage: SEE COMMENT
     Route: 048
     Dates: start: 20181127, end: 20190122
  9. SERESTA 10 MG, COMPRIME [Suspect]
     Active Substance: OXAZEPAM
     Indication: PRODUCT USED FOR UNKNOWN INDICATION
     Dosage: 20 MILLIGRAM DAILY; AND SO AGITATION
     Route: 048
  10. IMOVANE [Concomitant]
     Active Substance: ZOPICLONE
     Dosage: 1 DOSAGE FORMS DAILY; IN THE EVENING
     Route: 048
  11. LOXAPAC, SOLUTION BUVABLE [Suspect]
     Active Substance: LOXAPINE
     Indication: AGGRESSION
     Dosage: 30 GTT DAILY; BEFORE CARE
     Route: 048

REACTIONS (3)
  - Malaise [Recovered/Resolved]
  - Circulatory collapse [Recovered/Resolved]
  - Syncope [Recovered/Resolved]

NARRATIVE: CASE EVENT DATE: 20190122
